FAERS Safety Report 25633016 (Version 1)
Quarter: 2025Q3

REPORT INFORMATION
  Report Type: Spontaneous
  Country: JP (occurrence: JP)
  Receive Date: 20250801
  Receipt Date: 20250801
  Transmission Date: 20251020
  Serious: Yes (Death, Other)
  Sender: SANOFI AVENTIS
  Company Number: JP-MEIJISEIKA-202504534_P_1

PATIENT
  Age: 70 Year
  Sex: Male

DRUGS (1)
  1. REZUROCK [Suspect]
     Active Substance: BELUMOSUDIL
     Dosage: 200 MG, QD
     Route: 048
     Dates: start: 20240916

REACTIONS (2)
  - Pneumonia aspiration [Fatal]
  - Hepatic function abnormal [Unknown]
